FAERS Safety Report 17488364 (Version 1)
Quarter: 2020Q1

REPORT INFORMATION
  Report Type: Spontaneous
  Country: FR (occurrence: FR)
  Receive Date: 20200303
  Receipt Date: 20200303
  Transmission Date: 20200409
  Serious: Yes (Other)
  Sender: FDA-Public Use
  Company Number: FR-TEVA-2020-FR-1194387

PATIENT
  Sex: Female
  Weight: 90 kg

DRUGS (2)
  1. ESTREVA [Suspect]
     Active Substance: ESTRADIOL
     Indication: HORMONE REPLACEMENT THERAPY
     Dosage: 1 DOSAGE FORMS DAILY;
     Route: 003
     Dates: start: 2004, end: 201907
  2. ANDROCUR [Suspect]
     Active Substance: CYPROTERONE ACETATE
     Indication: MENOPAUSAL SYMPTOMS
     Dosage: .25 DOSAGE FORMS DAILY;
     Route: 048
     Dates: start: 2004, end: 201907

REACTIONS (3)
  - Headache [Not Recovered/Not Resolved]
  - Balance disorder [Not Recovered/Not Resolved]
  - Meningioma [Not Recovered/Not Resolved]

NARRATIVE: CASE EVENT DATE: 2004
